FAERS Safety Report 4698955-3 (Version None)
Quarter: 2005Q2

REPORT INFORMATION
  Report Type: 
  Country: None (occurrence: None)
  Receive Date: 20050623
  Receipt Date: 20050623
  Transmission Date: 20051028
  Serious: No
  Sender: FDA-Public Use
  Company Number: None

PATIENT
  Age: 38 Year
  Sex: Male
  Weight: 82 kg

DRUGS (1)
  1. GENTAMICIN - APP [Suspect]
     Indication: PROSTATITIS
     Dosage: 240MG   IV  Q DAY
     Route: 042
     Dates: start: 20050620, end: 20050621

REACTIONS (2)
  - DIZZINESS [None]
  - NAUSEA [None]
